FAERS Safety Report 8013616-0 (Version None)
Quarter: 2011Q4

REPORT INFORMATION
  Report Type: 
  Country: None (occurrence: None)
  Receive Date: 20111227
  Receipt Date: 20111227
  Transmission Date: 20120403
  Serious: No
  Sender: FDA-Public Use
  Company Number: None

PATIENT
  Age: 81 Year
  Sex: Male
  Weight: 72.5755 kg

DRUGS (2)
  1. COLCRYS [Suspect]
     Indication: GOUT
     Dosage: 1 TABLET DAILY
     Dates: start: 20111208, end: 20111211
  2. LEVOTHYROXINE SODIUM [Suspect]
     Indication: HYPOTHYROIDISM
     Dosage: 1 TABLET DAILY
     Dates: start: 20111003, end: 20111103

REACTIONS (5)
  - POLLAKIURIA [None]
  - INSOMNIA [None]
  - BACK PAIN [None]
  - DYSSTASIA [None]
  - DRUG EFFECT DELAYED [None]
